FAERS Safety Report 5758348-4 (Version None)
Quarter: 2008Q2

REPORT INFORMATION
  Report Type: 
  Country: None (occurrence: None)
  Receive Date: 20080604
  Receipt Date: 20080523
  Transmission Date: 20081010
  Serious: Yes (Hospitalization)
  Sender: FDA-Public Use
  Company Number: CH-ROCHE-566408

PATIENT
  Sex: Female

DRUGS (6)
  1. CAPECITABINE [Suspect]
     Dosage: ROUTE, FORMULATION AND FREQUENCY PER PROTOCOL. EVERY 3 WEEKS FOR 6 CYCLES. DATES OF THE THIRD CYCLE.
     Route: 048
     Dates: start: 20080410, end: 20080430
  2. OXALIPLATIN [Suspect]
     Dosage: FORMULATION: INFUSION. ROUTE, FORMULATION AND FREQUENCY PER PROTOCOL.
     Route: 042
     Dates: start: 20080410, end: 20080430
  3. GEMCITABINE [Suspect]
     Dosage: FORM: INFUSION. ROUTE, FORM AND FREQUENCY PER PROTOCOL. THIRD CYCLE.
     Route: 042
     Dates: start: 20080410, end: 20080430
  4. CEFEPIMUM [Concomitant]
     Route: 042
     Dates: start: 20080419
  5. METOCLOPRAMID [Concomitant]
     Route: 042
     Dates: start: 20080419
  6. 1 CONCOMITANT DRUG [Concomitant]
     Dosage: DRUG NAME NOT LEGIBLE.
     Route: 042
     Dates: start: 20080419

REACTIONS (2)
  - NEUTROPENIA [None]
  - ONCOLOGIC COMPLICATION [None]
